FAERS Safety Report 17623335 (Version 4)
Quarter: 2024Q4

REPORT INFORMATION
  Report Type: Other
  Country: DE (occurrence: DE)
  Receive Date: 20200403
  Receipt Date: 20241216
  Transmission Date: 20250114
  Serious: Yes (Death, Life-Threatening, Hospitalization, Other)
  Sender: MACLEODS
  Company Number: None

PATIENT

DRUGS (31)
  1. VALSARTAN [Suspect]
     Active Substance: VALSARTAN
     Indication: Systemic lupus erythematosus
     Dosage: UNK UNK, QD, BID 160 (1-0-1)
     Route: 065
  2. LEVOTHYROXINE [Suspect]
     Active Substance: LEVOTHYROXINE
     Indication: Systemic lupus erythematosus
     Dosage: UNK
     Route: 065
  3. ACYCLOVIR [Suspect]
     Active Substance: ACYCLOVIR
     Indication: Systemic lupus erythematosus
     Dosage: 400 MILLIGRAM, TID,1200 MG QD
     Route: 065
  4. ACYCLOVIR [Suspect]
     Active Substance: ACYCLOVIR
     Dosage: 400 MILLIGRAM, QD
     Route: 065
  5. ACYCLOVIR [Suspect]
     Active Substance: ACYCLOVIR
     Dosage: 1200 MILLIGRAM, QD
     Route: 065
  6. PREDNISOLONE [Suspect]
     Active Substance: PREDNISOLONE
     Indication: Systemic lupus erythematosus
     Dosage: 5 MILLIGRAM, QD
     Route: 065
     Dates: start: 1988
  7. FLUVASTATIN [Suspect]
     Active Substance: FLUVASTATIN SODIUM
     Indication: Systemic lupus erythematosus
     Dosage: UNK, QD, QD 20 (0-0-1)
     Route: 065
  8. BENLYSTA [Suspect]
     Active Substance: BELIMUMAB
     Indication: Systemic lupus erythematosus
     Dosage: 200 MILLIGRAM, Q.W., 200 MG, WE
     Route: 058
     Dates: start: 201708, end: 201904
  9. BENLYSTA [Suspect]
     Active Substance: BELIMUMAB
     Indication: White blood cell count decreased
     Dosage: 10 MILLIGRAM/KILOGRAM, Q.W., 10 MG/KG, WE
     Route: 058
     Dates: start: 201711, end: 201812
  10. BENLYSTA [Suspect]
     Active Substance: BELIMUMAB
     Dosage: 200 MILLIGRAM, Q.W., 200 MG, WE
     Route: 058
     Dates: start: 201806, end: 201807
  11. MOLSIDOMINE [Suspect]
     Active Substance: MOLSIDOMINE
     Indication: Systemic lupus erythematosus
     Dosage: UNK, QD, QD 8 RET (0-0-1)
     Route: 065
  12. AZATHIOPRINE [Suspect]
     Active Substance: AZATHIOPRINE
     Indication: Systemic lupus erythematosus
     Dosage: 50 MILLIGRAM
     Route: 065
     Dates: start: 201906, end: 201907
  13. AZATHIOPRINE [Suspect]
     Active Substance: AZATHIOPRINE
     Indication: White blood cell count decreased
     Dosage: UNK
     Route: 065
     Dates: start: 1997, end: 2008
  14. AZATHIOPRINE [Suspect]
     Active Substance: AZATHIOPRINE
     Indication: Lymphopenia
     Dosage: 50 MILLIGRAM
     Route: 065
     Dates: start: 20100419, end: 201904
  15. ELIQUIS [Suspect]
     Active Substance: APIXABAN
     Indication: Systemic lupus erythematosus
     Dosage: 2.5 MILLIGRAM
     Route: 065
  16. DETRUSITOL [Suspect]
     Active Substance: TOLTERODINE TARTRATE
     Indication: Systemic lupus erythematosus
     Dosage: UNK
     Route: 065
  17. MORPHINE SULFATE [Suspect]
     Active Substance: MORPHINE SULFATE
     Indication: Systemic lupus erythematosus
     Dosage: UNK, 20 TO S5X/D
     Route: 065
  18. PENTACARINAT [Suspect]
     Active Substance: PENTAMIDINE ISETHIONATE
     Indication: Systemic lupus erythematosus
     Dosage: UNK, INHALATION
     Dates: start: 201904
  19. HYDROXYCHLOROQUINE [Concomitant]
     Active Substance: HYDROXYCHLOROQUINE
     Indication: Product used for unknown indication
     Dosage: 200 MILLIGRAM, QD (0-0-1)
     Route: 065
     Dates: start: 2008
  20. HYDROXYCHLOROQUINE [Concomitant]
     Active Substance: HYDROXYCHLOROQUINE
     Dosage: 200 MILLIGRAM
     Route: 065
     Dates: start: 1994, end: 1997
  21. MCP [Concomitant]
     Active Substance: METOCLOPRAMIDE HYDROCHLORIDE
     Indication: Product used for unknown indication
     Dosage: UNK UNK, QD, TID 10
     Route: 065
  22. CHOLECALCIFEROL [Concomitant]
     Active Substance: CHOLECALCIFEROL
     Indication: Product used for unknown indication
     Dosage: UNK UNK, Q.W., WE, 20000
     Route: 065
  23. Laxatan [Concomitant]
     Indication: Product used for unknown indication
     Dosage: UNK
     Route: 065
  24. NITRENDIPINE [Concomitant]
     Active Substance: NITRENDIPINE
     Indication: Product used for unknown indication
     Dosage: UNK
     Route: 065
  25. MORPHINE [Concomitant]
     Active Substance: MORPHINE
     Indication: Product used for unknown indication
     Dosage: UNK, QD, BID 30 RET (1-0-1)
     Route: 065
  26. UMECLIDINIUM BROMIDE\VILANTEROL TRIFENATATE [Concomitant]
     Active Substance: UMECLIDINIUM BROMIDE\VILANTEROL TRIFENATATE
     Indication: Product used for unknown indication
     Dosage: UNK, 55/221 PUSH, INHALATION
  27. EZETIMIBE [Concomitant]
     Active Substance: EZETIMIBE
     Indication: Product used for unknown indication
     Dosage: UNK, QD, 10 (0-0-1)
     Route: 065
  28. ISDN [Concomitant]
     Indication: Product used for unknown indication
     Dosage: UNK, QD, BID20 RET (1-1-0)
     Route: 065
  29. LEVOTHYROXINE SODIUM [Concomitant]
     Active Substance: LEVOTHYROXINE SODIUM
     Indication: Product used for unknown indication
     Dosage: UNK UNK, QD, 50 (1-0-0)
     Route: 065
  30. DULOXETINE [Concomitant]
     Active Substance: DULOXETINE
     Indication: Product used for unknown indication
     Dosage: UNK UNK, QD, 30 (1-0-0)
     Route: 065
  31. Sab Simplex [Concomitant]
     Indication: Product used for unknown indication
     Dosage: 30 GTT, TID, 30GTT TO 3X/D
     Route: 065

REACTIONS (31)
  - Lymphopenia [Fatal]
  - Peritonitis [Fatal]
  - Pneumocystis jirovecii pneumonia [Fatal]
  - Sepsis [Fatal]
  - Antiphospholipid syndrome [Unknown]
  - Gastrooesophageal reflux disease [Unknown]
  - Drug hypersensitivity [Unknown]
  - Erysipelas [Unknown]
  - Anxiety disorder [Unknown]
  - Urinary tract infection [Unknown]
  - Gastritis haemorrhagic [Unknown]
  - Coombs positive haemolytic anaemia [Unknown]
  - Fall [Unknown]
  - Hypertension [Unknown]
  - Pancreatitis acute [Unknown]
  - Colitis ulcerative [Unknown]
  - Complex regional pain syndrome [Unknown]
  - Antinuclear antibody negative [Unknown]
  - Pleuritic pain [Unknown]
  - Depression [Unknown]
  - Leukopenia [Unknown]
  - Herpes simplex reactivation [Unknown]
  - Hypothyroidism [Unknown]
  - Systemic lupus erythematosus [Unknown]
  - Thrombocytopenia [Unknown]
  - Skin disorder [Unknown]
  - Hyperlipidaemia [Unknown]
  - Osteonecrosis [Unknown]
  - Off label use [Unknown]
  - Intentional product use issue [Unknown]
  - Intentional product misuse [Unknown]

NARRATIVE: CASE EVENT DATE: 19900101
